FAERS Safety Report 6373496-6 (Version None)
Quarter: 2009Q3

REPORT INFORMATION
  Report Type: 
  Country: None (occurrence: None)
  Receive Date: 20090924
  Receipt Date: 20090209
  Transmission Date: 20100115
  Serious: No
  Sender: FDA-Public Use
  Company Number: US-ASTRAZENECA-2009UW03781

PATIENT
  Age: 76 Year
  Sex: Female

DRUGS (6)
  1. SEROQUEL [Suspect]
     Indication: MAJOR DEPRESSION
     Dosage: 50 MG IN AM AND NOON, 300 MG AT BEDTIME
     Route: 048
     Dates: start: 20090103, end: 20090101
  2. SEROQUEL [Suspect]
     Indication: PSYCHOTIC DISORDER
     Dosage: 50 MG IN AM AND NOON, 300 MG AT BEDTIME
     Route: 048
     Dates: start: 20090103, end: 20090101
  3. SEROQUEL [Suspect]
     Dosage: 100 MG IN AM AND NOON, 300 MG AT BEDTIME
     Route: 048
     Dates: start: 20090201
  4. SEROQUEL [Suspect]
     Dosage: 100 MG IN AM AND NOON, 300 MG AT BEDTIME
     Route: 048
     Dates: start: 20090201
  5. ZOLOFT [Concomitant]
  6. GABAPENTIN [Concomitant]

REACTIONS (3)
  - CONSTIPATION [None]
  - DRUG INEFFECTIVE [None]
  - SOMNOLENCE [None]
